FAERS Safety Report 10272944 (Version 1)
Quarter: 2014Q2

REPORT INFORMATION
  Report Type: Spontaneous
  Country: US (occurrence: None)
  Receive Date: 20140630
  Receipt Date: 20140630
  Transmission Date: 20141212
  Serious: No
  Sender: FDA-Public Use
  Company Number: None

PATIENT
  Age: 39 Year
  Sex: Male
  Weight: 122.47 kg

DRUGS (1)
  1. LEVOFLOXACIN [Suspect]
     Indication: EPIDIDYMITIS
     Route: 048
     Dates: start: 20140529, end: 20140618

REACTIONS (1)
  - Vision blurred [None]
